FAERS Safety Report 9419273 (Version 1)
Quarter: 2013Q3

REPORT INFORMATION
  Report Type: Spontaneous
  Country: US (occurrence: US)
  Receive Date: 20130725
  Receipt Date: 20130725
  Transmission Date: 20140515
  Serious: No
  Sender: FDA-Public Use
  Company Number: US-GLAXOSMITHKLINE-A0997681A

PATIENT
  Age: 77 Year
  Sex: Female

DRUGS (4)
  1. LAMICTAL [Suspect]
     Indication: CONVULSION
     Dosage: 25MG PER DAY
     Route: 048
     Dates: start: 201206, end: 201207
  2. COUMADIN [Concomitant]
  3. TRIAMTERENE/HCTZ [Concomitant]
  4. METFORMIN HCL [Concomitant]

REACTIONS (4)
  - Malaise [Recovered/Resolved]
  - Presyncope [Unknown]
  - Dizziness [Unknown]
  - Feeling abnormal [Unknown]
